FAERS Safety Report 22283921 (Version 1)
Quarter: 2023Q2

REPORT INFORMATION
  Report Type: Report from Study
  Country: US (occurrence: US)
  Receive Date: 20230504
  Receipt Date: 20230504
  Transmission Date: 20230721
  Serious: Yes (Hospitalization, Other)
  Sender: FDA-Public Use
  Company Number: US-VERTEX PHARMACEUTICALS-2022-014294

PATIENT
  Sex: Male
  Weight: 74 kg

DRUGS (4)
  1. TRIKAFTA [Interacting]
     Active Substance: ELEXACAFTOR\IVACAFTOR\TEZACAFTOR
     Indication: Cystic fibrosis
     Dosage: 2 ORANGE TABS AM AND 1 BLUE TAB PM
     Route: 048
     Dates: start: 20191217
  2. PREDNISONE [Interacting]
     Active Substance: PREDNISONE
     Indication: Product used for unknown indication
     Route: 065
  3. PREDNISONE [Interacting]
     Active Substance: PREDNISONE
     Dosage: EVERY THREE DAYS
  4. REPAGLINIDE [Interacting]
     Active Substance: REPAGLINIDE
     Indication: Product used for unknown indication
     Dosage: UNK
     Route: 065

REACTIONS (21)
  - Bacterial test positive [Unknown]
  - Pulmonary haemorrhage [Not Recovered/Not Resolved]
  - Heart rate irregular [Unknown]
  - Bone density abnormal [Unknown]
  - Dyspnoea [Recovered/Resolved]
  - Blood glucose decreased [Unknown]
  - Blood glucose abnormal [Unknown]
  - Chromaturia [Not Recovered/Not Resolved]
  - Pain [Not Recovered/Not Resolved]
  - Varicella encephalitis [Unknown]
  - COVID-19 [Not Recovered/Not Resolved]
  - Pyrexia [Not Recovered/Not Resolved]
  - Paranasal sinus inflammation [Unknown]
  - Drug interaction [Unknown]
  - Eye pain [Not Recovered/Not Resolved]
  - Sinus pain [Not Recovered/Not Resolved]
  - Dysphonia [Not Recovered/Not Resolved]
  - Haemoptysis [Unknown]
  - Lung disorder [Unknown]
  - Drug level increased [Not Recovered/Not Resolved]
  - Headache [Not Recovered/Not Resolved]

NARRATIVE: CASE EVENT DATE: 20190101
